FAERS Safety Report 20629164 (Version 7)
Quarter: 2023Q1

REPORT INFORMATION
  Report Type: Spontaneous
  Country: US (occurrence: US)
  Receive Date: 20220323
  Receipt Date: 20230117
  Transmission Date: 20230417
  Serious: No
  Sender: FDA-Public Use
  Company Number: US-PFIZER INC-202200159330

PATIENT
  Age: 54 Year
  Sex: Male
  Weight: 86.6 kg

DRUGS (3)
  1. XELJANZ [Suspect]
     Active Substance: TOFACITINIB CITRATE
     Indication: Colitis ulcerative
     Dosage: 10 MG, 2X/DAY
     Dates: start: 202201
  2. XELJANZ [Suspect]
     Active Substance: TOFACITINIB CITRATE
     Dosage: 10 MG
     Dates: start: 20220113
  3. XELJANZ [Suspect]
     Active Substance: TOFACITINIB CITRATE
     Dosage: 10 MG
     Dates: start: 20220124

REACTIONS (9)
  - Condition aggravated [Unknown]
  - Muscle spasms [Unknown]
  - Nasal congestion [Unknown]
  - Gastrointestinal pain [Not Recovered/Not Resolved]
  - Gastrointestinal disorder [Unknown]
  - Aphasia [Unknown]
  - Abdominal discomfort [Unknown]
  - Pain in extremity [Unknown]
  - Arthralgia [Unknown]

NARRATIVE: CASE EVENT DATE: 20220207
